FAERS Safety Report 8333909-7 (Version None)
Quarter: 2012Q2

REPORT INFORMATION
  Report Type: 
  Country: None (occurrence: None)
  Receive Date: 20120503
  Receipt Date: 20120424
  Transmission Date: 20120825
  Serious: Yes (Other)
  Sender: FDA-Public Use
  Company Number: RO-ASTRAZENECA-2012SE26808

PATIENT
  Sex: Male
  Weight: 80 kg

DRUGS (3)
  1. PREDUCTAL [Concomitant]
     Route: 048
  2. ATACAND [Suspect]
     Indication: HYPERTENSION
     Route: 048
     Dates: start: 20090101, end: 20110101
  3. METOPROLOL TARTRATE [Concomitant]
     Indication: DRESSLER'S SYNDROME
     Route: 048

REACTIONS (1)
  - CHRONIC HEPATITIS [None]
